FAERS Safety Report 17282539 (Version 1)
Quarter: 2020Q1

REPORT INFORMATION
  Report Type: Spontaneous
  Country: US (occurrence: US)
  Receive Date: 20200117
  Receipt Date: 20200117
  Transmission Date: 20200409
  Serious: No
  Sender: FDA-Public Use
  Company Number: US-GLAXOSMITHKLINE-US2020AMR003157

PATIENT

DRUGS (2)
  1. BECONASE AQ [Suspect]
     Active Substance: BECLOMETHASONE DIPROPIONATE MONOHYDRATE
     Indication: LABYRINTHITIS
     Dosage: 2 DF, 1D
     Route: 065
  2. AVAMYS NASAL SPRAY [Suspect]
     Active Substance: FLUTICASONE FUROATE
     Indication: LABYRINTHITIS
     Dosage: 2 DF, 1D
     Route: 065

REACTIONS (5)
  - Balance disorder [Unknown]
  - Drug ineffective for unapproved indication [Unknown]
  - Rhinorrhoea [Unknown]
  - Product use in unapproved indication [Unknown]
  - Off label use [Unknown]
